FAERS Safety Report 7393252-X (Version None)
Quarter: 2011Q2

REPORT INFORMATION
  Report Type: 
  Country: None (occurrence: None)
  Receive Date: 20110405
  Receipt Date: 20110324
  Transmission Date: 20111010
  Serious: Yes (Hospitalization)
  Sender: FDA-Public Use
  Company Number: FR-BIOGENIDEC-2011BI011099

PATIENT
  Sex: Male
  Weight: 87 kg

DRUGS (3)
  1. SALBUTAMOL [Concomitant]
     Indication: ASTHMA
     Dates: start: 20091015
  2. BACLOFEN [Concomitant]
     Indication: MUSCLE SPASTICITY
     Dates: start: 20090401
  3. TYSABRI [Suspect]
     Indication: MULTIPLE SCLEROSIS
     Route: 042
     Dates: start: 20090421

REACTIONS (1)
  - ACARODERMATITIS [None]
